FAERS Safety Report 23538465 (Version 1)
Quarter: 2024Q1

REPORT INFORMATION
  Report Type: Spontaneous
  Country: US (occurrence: US)
  Receive Date: 20240219
  Receipt Date: 20240219
  Transmission Date: 20240410
  Serious: Yes (Other)
  Sender: FDA-Public Use
  Company Number: US-TAKEDA-2024TUS013858

PATIENT
  Age: 9 Year

DRUGS (2)
  1. GAMMAGARD LIQUID [Suspect]
     Active Substance: HUMAN IMMUNOGLOBULIN G
     Indication: Autoimmune disorder
     Dosage: 1 DOSAGE FORM, QD
     Route: 042
  2. GAMMAGARD LIQUID [Suspect]
     Active Substance: HUMAN IMMUNOGLOBULIN G
     Dosage: 1 DOSAGE FORM, QD
     Route: 042

REACTIONS (11)
  - Haptoglobin decreased [Unknown]
  - Haemolytic anaemia [Unknown]
  - Haemoglobin decreased [Unknown]
  - Blood lactate dehydrogenase increased [Unknown]
  - Blood bilirubin unconjugated increased [Unknown]
  - Blood urine present [Unknown]
  - Protein urine present [Unknown]
  - Red blood cells urine positive [Unknown]
  - Blood bilirubin increased [Unknown]
  - Anti A antibody positive [Unknown]
  - Coombs direct test positive [Unknown]
